FAERS Safety Report 8988321 (Version 2)
Quarter: 2013Q1

REPORT INFORMATION
  Report Type: Spontaneous
  Country: US (occurrence: None)
  Receive Date: 20121219
  Receipt Date: 20130219
  Transmission Date: 20140127
  Serious: Yes (Hospitalization)
  Sender: FDA-Public Use
  Company Number: HA12-360-AE

PATIENT
  Age: 59 Year
  Sex: Female
  Weight: 76.2 kg

DRUGS (5)
  1. SULFAMETHOXAZOLE AND TRIMETHOPRIM [Suspect]
     Indication: CYSTITIS
     Dosage: 1 TABLET,FOR 1 DOSE,ORAL
     Route: 048
     Dates: start: 20121008
  2. LEVOXYL [Concomitant]
  3. XARELTO [Concomitant]
  4. ALPRAZOLAM [Concomitant]
  5. FLONASE [Concomitant]

REACTIONS (5)
  - Cerebrovascular accident [None]
  - Meningitis viral [None]
  - Dizziness [None]
  - Tinnitus [None]
  - Thrombosis [None]
